FAERS Safety Report 6141162-8 (Version None)
Quarter: 2009Q2

REPORT INFORMATION
  Report Type: 
  Country: None (occurrence: None)
  Receive Date: 20090401
  Receipt Date: 20090401
  Transmission Date: 20091009
  Serious: No
  Sender: FDA-Public Use
  Company Number: None

PATIENT
  Sex: Male
  Weight: 87.27 kg

DRUGS (9)
  1. LISINOPRIL [Suspect]
     Dosage: 10MG TABLET 10 MG QD
     Route: 048
     Dates: start: 20080902, end: 20090330
  2. AVODART [Concomitant]
  3. CALAN SR (VERAPAMIL SUSTAINED RELEASE) [Concomitant]
  4. CORTISPORIN [Concomitant]
  5. IMITREX (SUMATRIPTAN) [Concomitant]
  6. LITHIUM CARBONATE SR [Concomitant]
  7. SIMVASTATIN [Concomitant]
  8. UROXATRAL [Concomitant]
  9. ZOLIPEDEM TARTRATE [Concomitant]

REACTIONS (1)
  - COUGH [None]
